FAERS Safety Report 17868592 (Version 2)
Quarter: 2020Q2

REPORT INFORMATION
  Report Type: Spontaneous
  Country: ZA (occurrence: ZA)
  Receive Date: 20200606
  Receipt Date: 20200609
  Transmission Date: 20200714
  Serious: Yes (Hospitalization, Other)
  Sender: FDA-Public Use
  Company Number: ZA-JNJFOC-20200600907

PATIENT

DRUGS (10)
  1. ALCOHOL. [Suspect]
     Active Substance: ALCOHOL
     Indication: POISONING DELIBERATE
     Route: 065
  2. COCAINE [Suspect]
     Active Substance: COCAINE
     Indication: POISONING DELIBERATE
     Route: 065
  3. PARACETAMOL AND CODEINE PHOSPHATE (I) [Suspect]
     Active Substance: ACETAMINOPHEN\CODEINE PHOSPHATE
     Indication: POISONING DELIBERATE
     Route: 065
  4. HEROIN [Suspect]
     Active Substance: DIAMORPHINE
     Indication: POISONING DELIBERATE
     Route: 065
  5. PARACETAMOL [Suspect]
     Active Substance: ACETAMINOPHEN
     Indication: POISONING DELIBERATE
     Route: 065
  6. ASPRIN [Suspect]
     Active Substance: ASPIRIN
     Indication: POISONING DELIBERATE
     Route: 065
  7. IRON [Suspect]
     Active Substance: IRON
     Indication: POISONING DELIBERATE
     Route: 065
  8. CANNABIS [Suspect]
     Active Substance: CANNABIS SATIVA SUBSP. INDICA TOP
     Indication: POISONING DELIBERATE
     Route: 065
  9. METHYLENEDIOXYMETHAMPHETAMINE [Suspect]
     Active Substance: MIDOMAFETAMINE
     Indication: POISONING DELIBERATE
     Route: 065
  10. METHAMPHETAMINE [Suspect]
     Active Substance: METHAMPHETAMINE
     Indication: POISONING DELIBERATE
     Route: 065

REACTIONS (4)
  - Intentional self-injury [Unknown]
  - Suicide attempt [Unknown]
  - Brain injury [Unknown]
  - Poisoning deliberate [Unknown]
